FAERS Safety Report 5536707-2 (Version None)
Quarter: 2007Q4

REPORT INFORMATION
  Report Type: 
  Country: None (occurrence: None)
  Receive Date: 20071206
  Receipt Date: 20070607
  Transmission Date: 20080405
  Serious: Yes (Hospitalization)
  Sender: FDA-Public Use
  Company Number: US-AMGEN-STX220090

PATIENT
  Sex: Female

DRUGS (2)
  1. ENBREL [Suspect]
     Indication: RHEUMATOID ARTHRITIS
     Route: 058
     Dates: start: 20060403, end: 20070408
  2. METHOTREXATE [Concomitant]
     Route: 048
     Dates: start: 19820201

REACTIONS (3)
  - BACTERIAL INFECTION [None]
  - STAPHYLOCOCCAL INFECTION [None]
  - UROSEPSIS [None]
